FAERS Safety Report 11240493 (Version 1)
Quarter: 2015Q3

REPORT INFORMATION
  Report Type: Spontaneous
  Country: US (occurrence: US)
  Receive Date: 20150706
  Receipt Date: 20150706
  Transmission Date: 20151125
  Serious: No
  Sender: FDA-Public Use
  Company Number: US-TEVA-515382USA

PATIENT
  Sex: Male

DRUGS (1)
  1. KETOCONAZOLE. [Suspect]
     Active Substance: KETOCONAZOLE
     Indication: TINEA CRURIS
     Route: 065

REACTIONS (4)
  - Urticaria [Unknown]
  - Swelling [Unknown]
  - Pharyngeal oedema [Unknown]
  - Lip swelling [Unknown]
